FAERS Safety Report 9655632 (Version 2)
Quarter: 2013Q4

REPORT INFORMATION
  Report Type: Report from Study
  Country: JP (occurrence: JP)
  Receive Date: 20131030
  Receipt Date: 20131127
  Transmission Date: 20140711
  Serious: Yes (Other)
  Sender: FDA-Public Use
  Company Number: JP-ROCHE-1294397

PATIENT
  Age: 77 Year
  Sex: Male

DRUGS (11)
  1. METHOXY POLYETHYLENE GLYCOL-EPOETIN BETA [Suspect]
     Indication: NEPHROGENIC ANAEMIA
     Route: 058
     Dates: start: 20121023, end: 20121127
  2. METHOXY POLYETHYLENE GLYCOL-EPOETIN BETA [Suspect]
     Indication: NEPHROGENIC ANAEMIA
     Route: 058
     Dates: start: 20130517
  3. BAYASPIRIN [Concomitant]
     Route: 048
  4. WARFARIN [Concomitant]
     Route: 048
  5. OLMETEC [Concomitant]
     Indication: DIABETIC NEPHROPATHY
     Dosage: OTHER PURPOSES: RENAL SCLEROSIS
     Route: 048
  6. BASEN (JAPAN) [Concomitant]
     Indication: DIABETIC NEPHROPATHY
     Dosage: OTHER PURPOSES: RENAL SCLEROSIS
     Route: 048
  7. NESINA [Concomitant]
     Indication: DIABETIC NEPHROPATHY
     Dosage: OTHER PURPOSES: RENAL SCLEROSIS
     Route: 048
  8. MAINTATE [Concomitant]
     Indication: DIABETIC NEPHROPATHY
     Dosage: OTHER PURPOSES: RENAL SCLEROSIS
     Route: 048
  9. LASIX [Concomitant]
     Indication: DIABETIC NEPHROPATHY
     Dosage: OTHER PURPOSES: RENAL SCLEROSIS
     Route: 048
  10. ALOSITOL [Concomitant]
     Indication: DIABETIC NEPHROPATHY
     Dosage: OTHER PURPOSES: RENAL SCLEROSIS
     Route: 048
  11. CALBLOCK [Concomitant]
     Indication: DIABETIC NEPHROPATHY
     Dosage: OTHER PURPOSES: RENAL SCLEROSIS
     Route: 048

REACTIONS (2)
  - Gastrointestinal haemorrhage [Recovering/Resolving]
  - Hypertension [Unknown]
